FAERS Safety Report 23515570 (Version 1)
Quarter: 2024Q1

REPORT INFORMATION
  Report Type: Spontaneous
  Country: CN (occurrence: CN)
  Receive Date: 20240213
  Receipt Date: 20240213
  Transmission Date: 20240410
  Serious: Yes (Life-Threatening, Hospitalization, Other)
  Sender: FDA-Public Use
  Company Number: CN-SA-SAC20240209001337

PATIENT
  Age: 71 Year
  Sex: Female
  Weight: 63 kg

DRUGS (2)
  1. OXALIPLATIN [Suspect]
     Active Substance: OXALIPLATIN
     Indication: Colon cancer
     Dosage: 130 MG, QD
     Route: 041
     Dates: start: 20240201, end: 20240201
  2. VALPROATE SODIUM [Concomitant]
     Active Substance: VALPROATE SODIUM
     Indication: Epilepsy
     Dosage: UNK

REACTIONS (14)
  - Coma [Not Recovered/Not Resolved]
  - Cardiac arrest [Recovered/Resolved]
  - Pulse abnormal [Recovered/Resolved]
  - Respiration abnormal [Recovered/Resolved]
  - Muscle twitching [Recovered/Resolved]
  - Pyrexia [Recovered/Resolved]
  - Anaphylactic shock [Recovered/Resolved]
  - Ear pruritus [Recovered/Resolved]
  - Confusional state [Recovered/Resolved]
  - Pallor [Recovered/Resolved]
  - Hyporesponsive to stimuli [Recovered/Resolved]
  - Cyanosis [Recovered/Resolved]
  - Heart rate increased [Recovered/Resolved]
  - Urinary tract infection staphylococcal [Recovered/Resolved]

NARRATIVE: CASE EVENT DATE: 20240201
